FAERS Safety Report 15882165 (Version 1)
Quarter: 2019Q1

REPORT INFORMATION
  Report Type: Spontaneous
  Country: AR (occurrence: AR)
  Receive Date: 20190128
  Receipt Date: 20190128
  Transmission Date: 20190417
  Serious: Yes (Other)
  Sender: FDA-Public Use
  Company Number: AR-AMGEN-ARGSP2018152160

PATIENT
  Age: 73 Year
  Sex: Female

DRUGS (1)
  1. ENBREL [Suspect]
     Active Substance: ETANERCEPT
     Indication: RHEUMATOID ARTHRITIS
     Dosage: 50 MG, WEEKLY
     Route: 065
     Dates: start: 20111015

REACTIONS (11)
  - Varicose vein [Recovered/Resolved]
  - Poor quality product administered [Unknown]
  - Wrong technique in product usage process [Unknown]
  - Arthropathy [Recovered/Resolved]
  - Accidental exposure to product [Unknown]
  - Device issue [Unknown]
  - Injection site injury [Recovering/Resolving]
  - Product dose omission [Unknown]
  - Joint stiffness [Recovered/Resolved]
  - Gait inability [Recovered/Resolved]
  - Exposure via skin contact [Unknown]

NARRATIVE: CASE EVENT DATE: 2014
